FAERS Safety Report 4377866-7 (Version None)
Quarter: 2004Q2

REPORT INFORMATION
  Report Type: 
  Country: None (occurrence: None)
  Receive Date: 20040601
  Receipt Date: 20040205
  Transmission Date: 20050107
  Serious: No
  Sender: FDA-Public Use
  Company Number: WAES 0402USA00946

PATIENT
  Age: 60 Year
  Sex: Female
  Weight: 75.2971 kg

DRUGS (6)
  1. ZETIA [Suspect]
     Indication: BLOOD TRIGLYCERIDES INCREASED
     Dosage: 10 MG/DAILY/PO
     Route: 048
     Dates: start: 20031201, end: 20040109
  2. NEURONTIN [Concomitant]
  3. PRILOSEC [Concomitant]
  4. REMERON [Concomitant]
  5. TENORMIN [Concomitant]
  6. WELCHOL [Concomitant]

REACTIONS (2)
  - BLOOD CREATINE PHOSPHOKINASE INCREASED [None]
  - MUSCLE CRAMP [None]
